FAERS Safety Report 7068938-7 (Version None)
Quarter: 2010Q4

REPORT INFORMATION
  Report Type: 
  Country: None (occurrence: None)
  Receive Date: 20101028
  Receipt Date: 20101025
  Transmission Date: 20110411
  Serious: Yes (Death)
  Sender: FDA-Public Use
  Company Number: PHHY2010IN71374

PATIENT
  Age: 8 Year
  Sex: Female

DRUGS (1)
  1. ASUNRA [Suspect]
     Dosage: 1 TABLET OF 400 MG AND 1 TABLET OF 100 MG)
     Route: 048
     Dates: start: 20100501

REACTIONS (2)
  - ADVERSE DRUG REACTION [None]
  - DEATH [None]
